FAERS Safety Report 16116546 (Version 1)
Quarter: 2019Q1

REPORT INFORMATION
  Report Type: Spontaneous
  Country: CA (occurrence: CA)
  Receive Date: 20190326
  Receipt Date: 20190326
  Transmission Date: 20190418
  Serious: Yes (Hospitalization)
  Sender: FDA-Public Use
  Company Number: CA-ROCHE-2285909

PATIENT
  Age: 14 Year
  Sex: Female
  Weight: 47 kg

DRUGS (4)
  1. XOLAIR [Suspect]
     Active Substance: OMALIZUMAB
     Indication: ASTHMA
     Dosage: 1 DF, BIW
     Route: 058
  2. ADVAIR HFA [Concomitant]
     Active Substance: FLUTICASONE PROPIONATE\SALMETEROL XINAFOATE
     Indication: PRODUCT USED FOR UNKNOWN INDICATION
     Route: 065
  3. SINGULAIR [Concomitant]
     Active Substance: MONTELUKAST SODIUM
     Indication: PRODUCT USED FOR UNKNOWN INDICATION
     Route: 065
  4. VENTOLIN [Concomitant]
     Active Substance: ALBUTEROL SULFATE
     Indication: PRODUCT USED FOR UNKNOWN INDICATION
     Route: 065

REACTIONS (14)
  - Conjunctivitis [Recovered/Resolved]
  - Skin lesion [Recovered/Resolved]
  - Eczema herpeticum [Recovered/Resolved]
  - Periorbital oedema [Recovered/Resolved]
  - Polymerase chain reaction positive [Recovered/Resolved]
  - Vision blurred [Recovered/Resolved]
  - Atopy [Recovered/Resolved]
  - Blister [Recovered/Resolved]
  - Herpes simplex test positive [Recovered/Resolved]
  - Photophobia [Recovered/Resolved]
  - Biopsy skin abnormal [Recovered/Resolved]
  - Rash vesicular [Recovered/Resolved]
  - Erythema [Recovered/Resolved]
  - Scab [Recovered/Resolved]
